FAERS Safety Report 10191026 (Version 2)
Quarter: 2014Q3

REPORT INFORMATION
  Report Type: Spontaneous
  Country: CA (occurrence: CA)
  Receive Date: 20140523
  Receipt Date: 20140716
  Transmission Date: 20150326
  Serious: Yes (Hospitalization, Other)
  Sender: FDA-Public Use
  Company Number: CA-TEVA-483328USA

PATIENT
  Sex: Male
  Weight: 67.5 kg

DRUGS (10)
  1. TREANDA [Suspect]
     Active Substance: BENDAMUSTINE HYDROCHLORIDE
     Indication: CHRONIC LYMPHOCYTIC LEUKAEMIA
     Route: 042
     Dates: start: 20140318
  2. ONDANSETRON [Concomitant]
     Active Substance: ONDANSETRON
  3. TECTRA [Concomitant]
  4. PREDNISONE. [Concomitant]
     Active Substance: PREDNISONE
     Dosage: 15 MILLIGRAM DAILY;
     Route: 048
     Dates: start: 201403
  5. PREDNISONE. [Concomitant]
     Active Substance: PREDNISONE
     Dosage: 10 MILLIGRAM DAILY;
     Route: 048
     Dates: start: 201403
  6. FOLIC ACID. [Concomitant]
     Active Substance: FOLIC ACID
  7. STEMETIL [Concomitant]
     Active Substance: PROCHLORPERAZINE MALEATE
  8. PREDNISONE. [Concomitant]
     Active Substance: PREDNISONE
     Dosage: 50 MILLIGRAM DAILY;
     Route: 048
     Dates: start: 201403
  9. SEPTRA DS [Concomitant]
     Active Substance: SULFAMETHOXAZOLE\TRIMETHOPRIM
     Dosage: .1837 DOSAGE FORMS DAILY;
     Route: 048
     Dates: start: 201403
  10. PREDNISONE. [Concomitant]
     Active Substance: PREDNISONE
     Dosage: 65 MICROGRAM DAILY;
     Route: 048
     Dates: start: 201403

REACTIONS (6)
  - Hyperhidrosis [Recovered/Resolved]
  - Chills [Recovered/Resolved]
  - Malaise [Recovered/Resolved]
  - Delirium [Recovered/Resolved]
  - Pyrexia [Recovered/Resolved]
  - Asthenia [Recovered/Resolved]
